FAERS Safety Report 10075685 (Version 1)
Quarter: 2014Q2

REPORT INFORMATION
  Report Type: Spontaneous
  Country: CH (occurrence: CH)
  Receive Date: 20140414
  Receipt Date: 20140414
  Transmission Date: 20141212
  Serious: Yes (Hospitalization)
  Sender: FDA-Public Use
  Company Number: CH-JNJFOC-20140406567

PATIENT
  Age: 53 Year
  Sex: Male

DRUGS (8)
  1. REMICADE [Suspect]
     Indication: COLITIS ULCERATIVE
     Route: 042
     Dates: start: 20130513
  2. IMUREK [Suspect]
     Indication: COLITIS ULCERATIVE
     Route: 048
     Dates: start: 201210, end: 20131205
  3. PREDNISONE [Suspect]
     Indication: COLITIS ULCERATIVE
     Route: 048
     Dates: start: 2008, end: 201310
  4. SALOFALK [Concomitant]
     Route: 065
  5. ATORVASTATIN [Concomitant]
     Route: 065
  6. METFIN [Concomitant]
     Route: 065
  7. FOSAMAX [Concomitant]
     Route: 065
  8. PANTOZOL [Concomitant]
     Route: 065

REACTIONS (4)
  - Disseminated cryptococcosis [Recovering/Resolving]
  - Cryptococcal cutaneous infection [Recovering/Resolving]
  - Pneumonia cryptococcal [Recovering/Resolving]
  - Pneumonia haemophilus [Unknown]
